FAERS Safety Report 23533355 (Version 2)
Quarter: 2024Q2

REPORT INFORMATION
  Report Type: Spontaneous
  Country: RU (occurrence: RU)
  Receive Date: 20240216
  Receipt Date: 20240528
  Transmission Date: 20240716
  Serious: Yes (Other)
  Sender: FDA-Public Use
  Company Number: RU-BAYER-2024A021173

PATIENT
  Age: 45 Year
  Sex: Female

DRUGS (1)
  1. ANGELIQ [Suspect]
     Active Substance: DROSPIRENONE\ESTRADIOL
     Indication: Uterine haemorrhage
     Dosage: UNK
     Route: 048
     Dates: start: 202303, end: 202307

REACTIONS (4)
  - Ovarian epithelial cancer [None]
  - Endometrial cancer [None]
  - Endometrial hyperplasia [None]
  - Contraindicated product administered [None]

NARRATIVE: CASE EVENT DATE: 20230701
